FAERS Safety Report 18328552 (Version 1)
Quarter: 2020Q3

REPORT INFORMATION
  Report Type: Spontaneous
  Country: CA (occurrence: CA)
  Receive Date: 20200930
  Receipt Date: 20200930
  Transmission Date: 20201103
  Serious: Yes (Life-Threatening)
  Sender: FDA-Public Use
  Company Number: CA-ACCORD-203240

PATIENT
  Age: 15 Year
  Sex: Female
  Weight: 94 kg

DRUGS (17)
  1. PENTAMIDINE [Concomitant]
     Active Substance: PENTAMIDINE
  2. CYTARABINE/CYTARABINE HYDROCHLORIDE/CYTARABINE OCFOSFATE [Suspect]
     Active Substance: CYTARABINE
     Indication: ACUTE LYMPHOCYTIC LEUKAEMIA
     Dosage: SOLUTION INTRATHECAL
     Route: 058
  3. ACICLOVIR [Concomitant]
     Active Substance: ACYCLOVIR
  4. HEPARIN [Concomitant]
     Active Substance: HEPARIN SODIUM
  5. LEUPROLIDE [Concomitant]
     Active Substance: LEUPROLIDE
  6. ONDANSETRON [Concomitant]
     Active Substance: ONDANSETRON
  7. CYCLOPHOSPHAMIDE/CYCLOPHOSPHAMIDE MONOHYDRATE [Suspect]
     Active Substance: CYCLOPHOSPHAMIDE
     Indication: ACUTE LYMPHOCYTIC LEUKAEMIA
     Route: 042
  8. PARACETAMOL [Concomitant]
     Active Substance: ACETAMINOPHEN
  9. METHOTREXATE. [Suspect]
     Active Substance: METHOTREXATE
     Indication: ACUTE LYMPHOCYTIC LEUKAEMIA
     Route: 037
  10. ENOXAPARIN [Concomitant]
     Active Substance: ENOXAPARIN
  11. AMITRIPTYLINE [Concomitant]
     Active Substance: AMITRIPTYLINE
  12. AMOXICILLIN. [Concomitant]
     Active Substance: AMOXICILLIN
  13. NORETHISTERONE [Concomitant]
     Active Substance: NORETHINDRONE
  14. DIMENHYDRINATE. [Concomitant]
     Active Substance: DIMENHYDRINATE
     Dosage: LIQUID INTRAVENOUS
  15. URSODEOXYCHOLATE SODIUM/URSODEOXYCHOLIC ACID [Concomitant]
     Active Substance: URSODIOL
  16. ETOPOSIDE. [Suspect]
     Active Substance: ETOPOSIDE
     Indication: ACUTE LYMPHOCYTIC LEUKAEMIA
     Route: 042
  17. MACROGOL [Concomitant]
     Active Substance: POLYETHYLENE GLYCOLS

REACTIONS (3)
  - Aplastic anaemia [Unknown]
  - Herpes zoster [Unknown]
  - Pancytopenia [Unknown]
